FAERS Safety Report 7122381-0 (Version None)
Quarter: 2010Q4

REPORT INFORMATION
  Report Type: 
  Country: None (occurrence: None)
  Receive Date: 20101124
  Receipt Date: 20101118
  Transmission Date: 20110411
  Serious: Yes (Hospitalization)
  Sender: FDA-Public Use
  Company Number: NL-ABBOTT-10P-114-0686894-00

PATIENT
  Sex: Male
  Weight: 4.1 kg

DRUGS (4)
  1. SYNAGIS [Suspect]
     Indication: ANTIVIRAL PROPHYLAXIS
     Route: 051
     Dates: start: 20101019, end: 20101019
  2. SYNAGIS [Suspect]
     Route: 051
     Dates: start: 20101118
  3. SPIRONOLACTONE [Concomitant]
     Indication: PRODUCT USED FOR UNKNOWN INDICATION
     Route: 048
  4. HYDROCHLOROTHIAZIDE [Concomitant]
     Indication: PRODUCT USED FOR UNKNOWN INDICATION
     Route: 048

REACTIONS (4)
  - CYANOSIS [None]
  - OEDEMA [None]
  - OXYGEN SATURATION DECREASED [None]
  - PALLOR [None]
